FAERS Safety Report 8646896 (Version 4)
Quarter: 2013Q1

REPORT INFORMATION
  Report Type: Spontaneous
  Country: AU (occurrence: AU)
  Receive Date: 20120703
  Receipt Date: 20130109
  Transmission Date: 20140127
  Serious: Yes (Life-Threatening, Other)
  Sender: FDA-Public Use
  Company Number: AU-COVIDIEN/TYCO HEALTHCARE/MALLINCKRODT-T201202682

PATIENT
  Age: 73 Year
  Sex: Male

DRUGS (2)
  1. EXALGO EXTENDED RELEASE [Suspect]
     Indication: PAIN
     Dosage: 12 MG, QD
  2. ALL OTHER THERAPEUTIC PRODUCTS [Concomitant]
     Indication: ATRIAL FIBRILLATION
     Dosage: UNK

REACTIONS (4)
  - Loss of consciousness [Recovered/Resolved with Sequelae]
  - Atrial fibrillation [Recovered/Resolved with Sequelae]
  - Blood pressure decreased [Unknown]
  - Road traffic accident [Recovered/Resolved with Sequelae]
